FAERS Safety Report 7475537-1 (Version None)
Quarter: 2011Q2

REPORT INFORMATION
  Report Type: 
  Country: None (occurrence: None)
  Receive Date: 20110512
  Receipt Date: 20110509
  Transmission Date: 20111010
  Serious: Yes (Other)
  Sender: FDA-Public Use
  Company Number: PHHY2010BR66784

PATIENT
  Sex: Female

DRUGS (2)
  1. TEGRETOL-XR [Suspect]
     Dosage: 200 MG, UNK
     Route: 048
  2. TEGRETOL-XR [Suspect]
     Dosage: 400 MG, UNK
     Route: 048

REACTIONS (1)
  - CONVULSION [None]
